FAERS Safety Report 8788117 (Version 1)
Quarter: 2012Q4

REPORT INFORMATION
  Report Type: Report from Study
  Country: HU (occurrence: HU)
  Receive Date: 20120914
  Receipt Date: 20120914
  Transmission Date: 20130627
  Serious: Yes (Hospitalization)
  Sender: FDA-Public Use
  Company Number: HU-ROCHE-1126220

PATIENT
  Sex: Female

DRUGS (3)
  1. XELODA [Suspect]
     Indication: COLORECTAL CANCER
     Dosage: dose:2x 3
     Route: 048
     Dates: start: 20090722, end: 201002
  2. GLYCERIN [Concomitant]
  3. NUTRIDRINK [Concomitant]

REACTIONS (1)
  - Paralysis [Unknown]
